FAERS Safety Report 9213398 (Version 1)
Quarter: 2013Q2

REPORT INFORMATION
  Report Type: Spontaneous
  Country: MX (occurrence: MX)
  Receive Date: 20130405
  Receipt Date: 20130405
  Transmission Date: 20140414
  Serious: Yes (Other)
  Sender: FDA-Public Use
  Company Number: PHHY2013MX032799

PATIENT
  Age: 62 Year
  Sex: Female

DRUGS (5)
  1. AKSPRI [Suspect]
     Indication: DIABETES MELLITUS
     Dosage: 1000 MG, DAILY
     Route: 048
     Dates: start: 201211, end: 201303
  2. AKSPRI [Suspect]
     Dosage: 0.5 DF (1000MG ), QD
  3. CO-DIOVAN [Suspect]
     Dosage: 2 UKN, DAILY
  4. LYRICA [Concomitant]
     Dosage: 2 UKN, DAILY
  5. ACETYLSALICYLIC ACID [Concomitant]
     Dosage: 1 UKN, DAILY

REACTIONS (2)
  - Syncope [Recovered/Resolved]
  - Blood glucose decreased [Recovered/Resolved]
